FAERS Safety Report 6106886-7 (Version None)
Quarter: 2009Q1

REPORT INFORMATION
  Report Type: 
  Country: None (occurrence: None)
  Receive Date: 20090305
  Receipt Date: 20090227
  Transmission Date: 20090719
  Serious: Yes (Hospitalization)
  Sender: FDA-Public Use
  Company Number: 2009AL001161

PATIENT
  Age: 54 Year
  Sex: Male

DRUGS (1)
  1. MINOXIDIL [Suspect]
     Indication: ALOPECIA
     Dosage: 2 PCT; QD; TOP
     Route: 061
     Dates: start: 19990101, end: 19990101

REACTIONS (1)
  - HEADACHE [None]
